FAERS Safety Report 9634283 (Version 1)
Quarter: 2013Q4

REPORT INFORMATION
  Report Type: Spontaneous
  Country: KR (occurrence: KR)
  Receive Date: 20131021
  Receipt Date: 20131021
  Transmission Date: 20140711
  Serious: Yes (Death, Hospitalization)
  Sender: FDA-Public Use
  Company Number: KR-JNJFOC-20131011357

PATIENT
  Sex: Male

DRUGS (3)
  1. FINIBAX [Suspect]
     Indication: INFECTION
     Route: 042
     Dates: start: 20130629, end: 20130711
  2. CRAVIT [Suspect]
     Indication: CHRONIC OBSTRUCTIVE PULMONARY DISEASE
     Dosage: 500 MG/100 ML
     Route: 065
     Dates: start: 20130627, end: 20130711
  3. CRAVIT [Suspect]
     Indication: PNEUMONIA
     Dosage: 500 MG/100 ML
     Route: 065
     Dates: start: 20130627, end: 20130711

REACTIONS (1)
  - Infection [Fatal]
